FAERS Safety Report 6580989-5 (Version None)
Quarter: 2010Q1

REPORT INFORMATION
  Report Type: 
  Country: None (occurrence: None)
  Receive Date: 20100215
  Receipt Date: 20100201
  Transmission Date: 20100710
  Serious: Yes (Hospitalization, Other)
  Sender: FDA-Public Use
  Company Number: FR-BRISTOL-MYERS SQUIBB COMPANY-14960728

PATIENT
  Age: 34 Year
  Sex: Male

DRUGS (4)
  1. ETOPOSIDE [Suspect]
     Indication: TESTIS CANCER
     Dosage: ROUTE DR; CYCLICAL FOR 5 DAYS
  2. CISPLATIN [Suspect]
     Indication: TESTIS CANCER
     Dosage: ROUTE DR; CYCLICAL- FOR 5 DAYS
  3. BLEOMYCIN SULFATE [Suspect]
     Indication: TESTIS CANCER
     Dosage: CYCLICAL ON DAY1, 8,15; ROUTE DR
  4. PREDNISOLONE [Suspect]
     Dosage: RECEIVED MORE THAN 420 MG

REACTIONS (2)
  - ARTERIAL THROMBOSIS [None]
  - PERIPHERAL ISCHAEMIA [None]
